FAERS Safety Report 24882860 (Version 8)
Quarter: 2025Q2

REPORT INFORMATION
  Report Type: Report from Study
  Country: US (occurrence: US)
  Receive Date: 20250124
  Receipt Date: 20250510
  Transmission Date: 20250717
  Serious: Yes (Other)
  Sender: BOEHRINGER INGELHEIM
  Company Number: US-Komodo Health-a23aa000005NYKfAAO

PATIENT
  Age: 62 Year
  Sex: Female

DRUGS (1)
  1. SPEVIGO [Suspect]
     Active Substance: SPESOLIMAB-SBZO
     Indication: Generalised pustular psoriasis
     Dates: start: 20250109

REACTIONS (9)
  - Corneal dystrophy [Not Recovered/Not Resolved]
  - Injection site pain [Unknown]
  - Abdominal discomfort [Not Recovered/Not Resolved]
  - Hypoaesthesia [Unknown]
  - Paraesthesia [Unknown]
  - Nasal congestion [Unknown]
  - Rash erythematous [Not Recovered/Not Resolved]
  - Skin weeping [Not Recovered/Not Resolved]
  - Diarrhoea [Not Recovered/Not Resolved]

NARRATIVE: CASE EVENT DATE: 20250101
